APPROVED DRUG PRODUCT: SORBITRATE
Active Ingredient: ISOSORBIDE DINITRATE
Strength: 5MG
Dosage Form/Route: TABLET;SUBLINGUAL
Application: N016191 | Product #001
Applicant: ASTRAZENECA PHARMACEUTICALS LP
Approved: Apr 1, 1996 | RLD: No | RS: No | Type: DISCN